FAERS Safety Report 6277462-0 (Version None)
Quarter: 2009Q3

REPORT INFORMATION
  Report Type: 
  Country: None (occurrence: None)
  Receive Date: 20090722
  Receipt Date: 20090710
  Transmission Date: 20100115
  Serious: Yes (Other)
  Sender: FDA-Public Use
  Company Number: DE-PFIZER INC-2009238617

PATIENT
  Age: 72 Year

DRUGS (1)
  1. CLINDAMYCIN HCL [Suspect]
     Indication: PROPHYLAXIS AGAINST TRANSPLANT REJECTION
     Dosage: 600 MG, 3X/DAY
     Route: 048

REACTIONS (4)
  - DIARRHOEA [None]
  - GENITAL RASH [None]
  - RASH [None]
  - SKIN REACTION [None]
